FAERS Safety Report 22535608 (Version 1)
Quarter: 2023Q2

REPORT INFORMATION
  Report Type: Spontaneous
  Country: US (occurrence: US)
  Receive Date: 20230608
  Receipt Date: 20230608
  Transmission Date: 20230722
  Serious: No
  Sender: FDA-Public Use
  Company Number: US-009507513-2306USA000939

PATIENT

DRUGS (1)
  1. WELIREG [Suspect]
     Active Substance: BELZUTIFAN
     Dosage: 120 MG/ 3 TABLETS DAILY

REACTIONS (3)
  - Wrong technique in product usage process [Unknown]
  - Incorrect route of product administration [Unknown]
  - No adverse event [Unknown]
